FAERS Safety Report 17768585 (Version 4)
Quarter: 2024Q3

REPORT INFORMATION
  Report Type: Spontaneous
  Country: DE (occurrence: DE)
  Receive Date: 20200512
  Receipt Date: 20240830
  Transmission Date: 20241017
  Serious: Yes (Death, Life-Threatening, Hospitalization, Other)
  Sender: ROCHE
  Company Number: DE-002147023-NVSC2020DE076611

PATIENT
  Age: 72 Year
  Sex: Male
  Weight: 57.8 kg

DRUGS (7)
  1. MYCOPHENOLATE MOFETIL [Suspect]
     Active Substance: MYCOPHENOLATE MOFETIL
     Indication: Immunosuppressant drug therapy
     Dosage: 500 MG, BID PER OS
     Route: 065
  2. MYCOPHENOLATE MOFETIL [Suspect]
     Active Substance: MYCOPHENOLATE MOFETIL
     Indication: Heart transplant
     Dosage: 720 MILLIGRAM, 0.5 DAY
     Route: 048
  3. EVEROLIMUS [Suspect]
     Active Substance: EVEROLIMUS
     Indication: Heart transplant
     Dosage: 1.5 MILLIGRAM. 0.5 DAY
     Route: 048
  4. EVEROLIMUS [Suspect]
     Active Substance: EVEROLIMUS
     Indication: Immunosuppression
     Dosage: 1.5 MILLIGRAM. 0.5 DAY
     Route: 048
  5. EVEROLIMUS [Suspect]
     Active Substance: EVEROLIMUS
     Indication: Immunosuppressant drug therapy
  6. TACROLIMUS [Suspect]
     Active Substance: TACROLIMUS
     Indication: Immunosuppressant drug therapy
     Dosage: 1.5 MG, BID PER OS
     Route: 065
  7. TACROLIMUS [Suspect]
     Active Substance: TACROLIMUS
     Indication: Heart transplant
     Route: 065

REACTIONS (11)
  - Renal impairment [Unknown]
  - Acute respiratory distress syndrome [Recovered/Resolved]
  - Septic shock [Fatal]
  - Post transplant lymphoproliferative disorder [Unknown]
  - Multiple organ dysfunction syndrome [Fatal]
  - Superinfection viral [Unknown]
  - Pneumonitis [Recovering/Resolving]
  - Device related infection [Unknown]
  - Metapneumovirus infection [Recovering/Resolving]
  - Interstitial lung disease [Recovering/Resolving]
  - Pulmonary toxicity [Recovering/Resolving]
